FAERS Safety Report 8901515 (Version 2)
Quarter: 2013Q1

REPORT INFORMATION
  Report Type: Report from Study
  Country: US (occurrence: US)
  Receive Date: 20121108
  Receipt Date: 20130110
  Transmission Date: 20140127
  Serious: No
  Sender: FDA-Public Use
  Company Number: US-VERTEX PHARMACEUTICAL INC.-2012-024265

PATIENT
  Age: 12 Year
  Sex: Male
  Weight: 62.3 kg

DRUGS (7)
  1. VX-770 [Suspect]
     Indication: CYSTIC FIBROSIS
     Dosage: 150 MG, BID
     Route: 048
     Dates: start: 20120203
  2. VITAMIN D3 [Concomitant]
  3. PULMOZYME [Concomitant]
  4. ZANTAC [Concomitant]
  5. ZENPEP [Concomitant]
  6. FLOVENT [Concomitant]
  7. VENTOLIN                           /00139501/ [Concomitant]

REACTIONS (2)
  - Ear infection [Recovered/Resolved]
  - Infective pulmonary exacerbation of cystic fibrosis [Recovered/Resolved]
